FAERS Safety Report 19163881 (Version 1)
Quarter: 2021Q2

REPORT INFORMATION
  Report Type: Spontaneous
  Country: US (occurrence: US)
  Receive Date: 20210421
  Receipt Date: 20210421
  Transmission Date: 20210717
  Serious: Yes (Hospitalization)
  Sender: FDA-Public Use
  Company Number: US-MYLANLABS-2021M1023336

PATIENT
  Age: 64 Year
  Sex: Female

DRUGS (6)
  1. HEPARIN [Suspect]
     Active Substance: HEPARIN SODIUM
     Indication: CAROTID ARTERY THROMBOSIS
     Dosage: IV DRIP
     Route: 041
  2. ASPIRIN                            /00002701/ [Suspect]
     Active Substance: ASPIRIN
     Indication: CAROTID ARTERY THROMBOSIS
     Dosage: 81 MILLIGRAM, QD
     Route: 065
  3. HEPARIN [Suspect]
     Active Substance: HEPARIN SODIUM
     Indication: ISCHAEMIC STROKE
  4. APIXABAN [Suspect]
     Active Substance: APIXABAN
     Indication: CAROTID ARTERY THROMBOSIS
     Dosage: 2.5 MILLIGRAM, BID
     Route: 065
  5. ASPIRIN                            /00002701/ [Suspect]
     Active Substance: ASPIRIN
     Indication: ISCHAEMIC STROKE
  6. APIXABAN [Suspect]
     Active Substance: APIXABAN
     Indication: ISCHAEMIC STROKE

REACTIONS (1)
  - Drug ineffective [Unknown]
